FAERS Safety Report 7091089-2 (Version None)
Quarter: 2010Q4

REPORT INFORMATION
  Report Type: 
  Country: None (occurrence: None)
  Receive Date: 20101109
  Receipt Date: 20101029
  Transmission Date: 20110411
  Serious: Yes (Hospitalization, Other)
  Sender: FDA-Public Use
  Company Number: PHHY2010TW74381

PATIENT
  Sex: Female

DRUGS (1)
  1. NEORAL [Suspect]
     Indication: RENAL TRANSPLANT
     Dosage: 250 MG
     Route: 048
     Dates: start: 20090818, end: 20100318

REACTIONS (4)
  - COMPUTERISED TOMOGRAM ABDOMEN ABNORMAL [None]
  - ESCHERICHIA URINARY TRACT INFECTION [None]
  - PYREXIA [None]
  - RENAL INJURY [None]
